FAERS Safety Report 7889651-X (Version None)
Quarter: 2011Q4

REPORT INFORMATION
  Report Type: 
  Country: None (occurrence: None)
  Receive Date: 20111103
  Receipt Date: 20111031
  Transmission Date: 20120403
  Serious: Yes (Other)
  Sender: FDA-Public Use
  Company Number: US-PFIZER INC-2011265741

PATIENT

DRUGS (1)
  1. ZOLOFT [Suspect]
     Dosage: 22 YEARS

REACTIONS (1)
  - COLITIS [None]
